FAERS Safety Report 5588051-5 (Version None)
Quarter: 2008Q1

REPORT INFORMATION
  Report Type: 
  Country: None (occurrence: None)
  Receive Date: 20080111
  Receipt Date: 20071231
  Transmission Date: 20080703
  Serious: Yes (Other)
  Sender: FDA-Public Use
  Company Number: PHHO2007NL21170

PATIENT
  Age: 12 Year
  Sex: Female
  Weight: 33 kg

DRUGS (1)
  1. LIORESAL [Suspect]
     Indication: MUSCLE SPASTICITY
     Dosage: 25UG
     Route: 037

REACTIONS (2)
  - CSF PRESSURE DECREASED [None]
  - LETHARGY [None]
